FAERS Safety Report 7811045-3 (Version None)
Quarter: 2011Q4

REPORT INFORMATION
  Report Type: 
  Country: None (occurrence: None)
  Receive Date: 20111013
  Receipt Date: 20110930
  Transmission Date: 20120403
  Serious: Yes (Hospitalization)
  Sender: FDA-Public Use
  Company Number: US-BAYER-2011-009016

PATIENT
  Age: 31 Year
  Sex: Female
  Weight: 99 kg

DRUGS (10)
  1. LEVOTHYROXINE SODIUM [Concomitant]
     Dosage: 100 MCG/24HR, QD
     Route: 048
     Dates: start: 20010101, end: 20040101
  2. ALBUTEROL [Concomitant]
     Dosage: UNK UNK, PRN
  3. WELLBUTRIN [Concomitant]
     Dosage: 150 MG, BID
     Route: 048
     Dates: start: 20010101, end: 20040101
  4. YASMIN [Suspect]
     Indication: CONTRACEPTION
     Dosage: UNK
     Dates: start: 20011001, end: 20020201
  5. PREVACID [Concomitant]
     Dosage: UNK UNK, PRN
     Route: 048
  6. IBUPROFEN [Concomitant]
     Route: 048
  7. AUGMENTIN '125' [Concomitant]
     Dosage: UNK
     Route: 048
     Dates: start: 20020201
  8. TYLENOL-500 [Concomitant]
     Route: 048
  9. YASMIN [Suspect]
     Indication: OVARIAN CYST
  10. IRON [Concomitant]
     Dosage: 325 MG, BID
     Route: 048

REACTIONS (6)
  - INJURY [None]
  - PAIN IN EXTREMITY [None]
  - PULMONARY EMBOLISM [None]
  - PAIN [None]
  - OEDEMA PERIPHERAL [None]
  - DEEP VEIN THROMBOSIS [None]
